FAERS Safety Report 5282027-3 (Version None)
Quarter: 2007Q1

REPORT INFORMATION
  Report Type: 
  Country: None (occurrence: None)
  Receive Date: 20070330
  Receipt Date: 20070321
  Transmission Date: 20070707
  Serious: Yes (Disabling)
  Sender: FDA-Public Use
  Company Number: DEWYE896906MAR07

PATIENT
  Sex: Female
  Weight: 48 kg

DRUGS (4)
  1. ENBREL [Suspect]
     Indication: ANKYLOSING SPONDYLITIS
     Route: 058
     Dates: start: 20060401, end: 20070301
  2. KATADOLON [Concomitant]
     Route: 048
  3. PANTOZOL [Concomitant]
     Route: 048
  4. PIROXICAM [Concomitant]
     Route: 048

REACTIONS (2)
  - HYPOAESTHESIA [None]
  - PARKINSON'S DISEASE [None]
